FAERS Safety Report 13985070 (Version 3)
Quarter: 2018Q1

REPORT INFORMATION
  Report Type: Spontaneous
  Country: US (occurrence: US)
  Receive Date: 20170919
  Receipt Date: 20180301
  Transmission Date: 20180508
  Serious: No
  Sender: FDA-Public Use
  Company Number: US-ASTRAZENECA-2017SE94097

PATIENT
  Age: 29 Year
  Sex: Female

DRUGS (8)
  1. Z-PACK [Concomitant]
     Active Substance: AZITHROMYCIN DIHYDRATE
  2. PSEUDOEPHEDRINE [Concomitant]
     Active Substance: PSEUDOEPHEDRINE
  3. NASACORT [Concomitant]
     Active Substance: TRIAMCINOLONE ACETONIDE
  4. AUGMENTIN [Concomitant]
     Active Substance: AMOXICILLIN\CLAVULANATE POTASSIUM
  5. KLONIPIN [Concomitant]
     Active Substance: CLONAZEPAM
  6. SEROQUEL [Suspect]
     Active Substance: QUETIAPINE FUMARATE
     Indication: BIPOLAR DISORDER
     Route: 048
     Dates: start: 2002, end: 2015
  7. SEROQUEL [Suspect]
     Active Substance: QUETIAPINE FUMARATE
     Indication: BIPOLAR DISORDER
     Route: 048
     Dates: start: 201802
  8. OMNARIS [Concomitant]
     Active Substance: CICLESONIDE
     Indication: MULTIPLE ALLERGIES

REACTIONS (9)
  - Irritability [Unknown]
  - Product substitution issue [Unknown]
  - Anxiety [Unknown]
  - Palpitations [Unknown]
  - Mania [Unknown]
  - Insomnia [Unknown]
  - Drug ineffective [Unknown]
  - Hypersensitivity [Unknown]
  - Nasal congestion [Unknown]

NARRATIVE: CASE EVENT DATE: 2005
